FAERS Safety Report 17716959 (Version 1)
Quarter: 2020Q2

REPORT INFORMATION
  Report Type: Spontaneous
  Country: US (occurrence: US)
  Receive Date: 20200428
  Receipt Date: 20200428
  Transmission Date: 20200714
  Serious: No
  Sender: FDA-Public Use
  Company Number: US-SA-2020SA039943

PATIENT
  Age: 34 Year
  Sex: Male

DRUGS (4)
  1. MONTELUKAST [MONTELUKAST SODIUM] [Concomitant]
     Active Substance: MONTELUKAST SODIUM
  2. DUPIXENT [Suspect]
     Active Substance: DUPILUMAB
     Indication: CHRONIC RHINOSINUSITIS WITH NASAL POLYPS
     Dosage: 300 MG, QOW
     Route: 058
     Dates: start: 20191201
  3. BECLOMETHASONE DIPROPIONATE [BECLOMETASONE DIPROPIONATE] [Concomitant]
     Active Substance: BECLOMETHASONE DIPROPIONATE
     Dosage: 1 SPRAY IN EACH NOSTRIL 2 (TWO) TIMES DAILY
     Route: 045
  4. FLUTICASONE. [Concomitant]
     Active Substance: FLUTICASONE

REACTIONS (3)
  - Rash [Recovered/Resolved]
  - Hypersensitivity [Unknown]
  - Skin erosion [Recovered/Resolved]

NARRATIVE: CASE EVENT DATE: 20200206
